FAERS Safety Report 4945712-6 (Version None)
Quarter: 2006Q1

REPORT INFORMATION
  Report Type: 
  Country: None (occurrence: None)
  Receive Date: 20060117
  Receipt Date: 20050428
  Transmission Date: 20060701
  Serious: Yes (Hospitalization)
  Sender: FDA-Public Use
  Company Number: A03200501262

PATIENT
  Age: 68 Year
  Sex: Female
  Weight: 77.1 kg

DRUGS (5)
  1. PLAVIX [Suspect]
     Dosage: 75 MG QD - ORAL
     Route: 048
     Dates: start: 20050301
  2. GLYCERYL TRINITRATE [Concomitant]
  3. PAROXETINE HYDROCHLORIDE [Concomitant]
  4. FUROSEMIDE [Concomitant]
  5. AMLODIPINE BESYLATE [Concomitant]

REACTIONS (2)
  - ALOPECIA [None]
  - VERTIGO [None]
